FAERS Safety Report 14969682 (Version 1)
Quarter: 2018Q2

REPORT INFORMATION
  Report Type: Spontaneous
  Country: US (occurrence: US)
  Receive Date: 20180604
  Receipt Date: 20180604
  Transmission Date: 20180711
  Serious: No
  Sender: FDA-Public Use
  Company Number: US-OTSUKA-2018_012433

PATIENT

DRUGS (1)
  1. SAMSCA [Suspect]
     Active Substance: TOLVAPTAN
     Indication: BLOOD SODIUM ABNORMAL
     Dosage: 15 MG, QD
     Route: 065

REACTIONS (4)
  - Incorrect drug administration duration [Unknown]
  - Inability to afford medication [Unknown]
  - Drug dependence [Unknown]
  - Insurance issue [Unknown]
